FAERS Safety Report 5627197-X (Version None)
Quarter: 2008Q1

REPORT INFORMATION
  Report Type: 
  Country: None (occurrence: None)
  Receive Date: 20080212
  Receipt Date: 20080212
  Transmission Date: 20080703
  Serious: No
  Sender: FDA-Public Use
  Company Number: None

PATIENT
  Age: 61 Year
  Sex: Male
  Weight: 152.8622 kg

DRUGS (1)
  1. CHANTIX [Suspect]
     Indication: SMOKING CESSATION THERAPY
     Dosage: 1MG TWICE A DAY DAILY PO
     Route: 048
     Dates: start: 20080124, end: 20080211

REACTIONS (4)
  - ABNORMAL DREAMS [None]
  - AGGRESSION [None]
  - FEELING HOT [None]
  - STOMACH DISCOMFORT [None]
